FAERS Safety Report 9491900 (Version 1)
Quarter: 2013Q3

REPORT INFORMATION
  Report Type: Spontaneous
  Country: US (occurrence: US)
  Receive Date: 20130830
  Receipt Date: 20130830
  Transmission Date: 20140515
  Serious: Yes (Death)
  Sender: FDA-Public Use
  Company Number: US-TEVA-429192USA

PATIENT
  Sex: Male

DRUGS (18)
  1. FENTORA [Suspect]
     Indication: BREAKTHROUGH PAIN
     Route: 002
  2. ALLOPURINOL [Concomitant]
     Indication: GOUT
  3. AMIODARONE [Concomitant]
     Indication: CORONARY ARTERY DISEASE
  4. AMLODIPINE [Concomitant]
     Indication: HYPERTENSION
  5. ASPIRIN [Concomitant]
     Indication: CORONARY ARTERY DISEASE
  6. COREG [Concomitant]
     Indication: CORONARY ARTERY DISEASE
  7. CLOBETASOL [Concomitant]
     Route: 061
  8. CRESTOR [Concomitant]
     Indication: HYPERCHOLESTEROLAEMIA
  9. LISINOPRIL [Concomitant]
     Indication: HYPERTENSION
  10. LORAZEPAM [Concomitant]
     Indication: ANXIETY
  11. MELOXICAM [Concomitant]
     Indication: PAIN
  12. METHOCARBAMOL [Concomitant]
     Indication: MUSCLE SPASMS
  13. METFORMIN [Concomitant]
     Indication: DIABETES MELLITUS
  14. NITROGLYCERIN [Concomitant]
     Indication: CHEST PAIN
  15. MIRALAX [Concomitant]
     Indication: CONSTIPATION
  16. RAPAFLO [Concomitant]
     Indication: BENIGN PROSTATIC HYPERPLASIA
  17. VITAMIN D [Concomitant]
     Indication: MEDICAL DIET
  18. DOCUSATE SODIUM\SENNOSIDES [Concomitant]
     Indication: CONSTIPATION

REACTIONS (1)
  - Death [Fatal]
